FAERS Safety Report 19485073 (Version 1)
Quarter: 2021Q3

REPORT INFORMATION
  Report Type: Report from Study
  Country: DE (occurrence: DE)
  Receive Date: 20210701
  Receipt Date: 20210701
  Transmission Date: 20211014
  Serious: Yes (Hospitalization)
  Sender: FDA-Public Use
  Company Number: DE-BIOGEN-2021BI01025674

PATIENT
  Age: 0 Year
  Sex: Female
  Weight: 2.86 kg

DRUGS (3)
  1. PLEGRIDY [Suspect]
     Active Substance: PEGINTERFERON BETA-1A
     Indication: MATERNAL EXPOSURE TIMING UNSPECIFIED
     Route: 064
     Dates: start: 20141001, end: 201512
  2. PLEGRIDY [Suspect]
     Active Substance: PEGINTERFERON BETA-1A
     Route: 063
     Dates: start: 201702, end: 20170905
  3. VITAMIN K [Concomitant]
     Active Substance: PHYTONADIONE
     Indication: PROPHYLAXIS
     Route: 065
     Dates: start: 20160731, end: 20160731

REACTIONS (5)
  - Haemangioma congenital [Recovered/Resolved]
  - Weight decrease neonatal [Recovered/Resolved]
  - Foetal exposure during pregnancy [Recovered/Resolved]
  - Maternal exposure during breast feeding [Recovered/Resolved]
  - Jaundice neonatal [Recovered/Resolved]

NARRATIVE: CASE EVENT DATE: 201512
